FAERS Safety Report 14757812 (Version 1)
Quarter: 2018Q2

REPORT INFORMATION
  Report Type: Spontaneous
  Country: US (occurrence: US)
  Receive Date: 20180409
  Receipt Date: 20180409
  Transmission Date: 20180711
  Serious: Yes (Life-Threatening, Hospitalization)
  Sender: FDA-Public Use
  Company Number: None

PATIENT
  Age: 60 Year
  Sex: Female
  Weight: 91.8 kg

DRUGS (8)
  1. CLOZAPINE. [Suspect]
     Active Substance: CLOZAPINE
     Indication: SCHIZOPHRENIA
     Route: 048
     Dates: start: 20170922, end: 20171128
  2. BENZTROPINE. [Concomitant]
     Active Substance: BENZTROPINE
     Dates: start: 20170303
  3. LOSARTAN. [Concomitant]
     Active Substance: LOSARTAN
     Dates: start: 20170602
  4. LEVOTHYROXINE. [Concomitant]
     Active Substance: LEVOTHYROXINE
     Dates: start: 20170324
  5. QUETIAPINE. [Concomitant]
     Active Substance: QUETIAPINE
     Dates: start: 20170422, end: 20171222
  6. METFORMIN [Concomitant]
     Active Substance: METFORMIN HYDROCHLORIDE
     Dates: start: 20170224
  7. FLUPHENAZINE [Concomitant]
     Active Substance: FLUPHENAZINE
     Dates: start: 20170302
  8. LORAZEPAM. [Concomitant]
     Active Substance: LORAZEPAM
     Dates: start: 20170302

REACTIONS (3)
  - Neutrophil count decreased [None]
  - Infection [None]
  - Febrile neutropenia [None]

NARRATIVE: CASE EVENT DATE: 20171128
